FAERS Safety Report 8162333-5 (Version None)
Quarter: 2012Q1

REPORT INFORMATION
  Report Type: 
  Country: None (occurrence: None)
  Receive Date: 20120224
  Receipt Date: 20120213
  Transmission Date: 20120608
  Serious: Yes (Hospitalization)
  Sender: FDA-Public Use
  Company Number: GB-SANOFI-AVENTIS-2012SA009544

PATIENT
  Age: 68 Year
  Sex: Female

DRUGS (4)
  1. ANTINEOPLASTIC AGENTS [Suspect]
     Route: 065
     Dates: start: 20120202
  2. ANTINEOPLASTIC AGENTS [Suspect]
     Route: 065
     Dates: start: 20111130, end: 20120127
  3. ETHAMBUTOL HYDROCHLORIDE [Suspect]
     Route: 048
     Dates: start: 20120127, end: 20120129
  4. RIFAMPICIN [Suspect]
     Route: 048

REACTIONS (1)
  - ADVERSE REACTION [None]
